FAERS Safety Report 10216556 (Version 2)
Quarter: 2014Q2

REPORT INFORMATION
  Report Type: Report from Study
  Country: NO (occurrence: NO)
  Receive Date: 20140604
  Receipt Date: 20140612
  Transmission Date: 20141212
  Serious: Yes (Death)
  Sender: FDA-Public Use
  Company Number: NO-PFIZER INC-2014145744

PATIENT
  Age: 65 Year
  Sex: Female

DRUGS (5)
  1. L-ASPARAGINASE [Suspect]
     Indication: NON-HODGKIN^S LYMPHOMA
     Dosage: DOSAGE FORM: UNSPECIFIED, DAY OF ADMINISTRATION: 8-21
     Route: 042
  2. VINCRISTINE SULFATE [Concomitant]
     Indication: NON-HODGKIN^S LYMPHOMA
     Dosage: DOSAGE FORM: UNSPECIFIED, MAX 2.0 MG; DAY OF ADMINISTRATION: 1, 8, 15, 22, 29
     Route: 042
  3. DOXORUBICIN HYDROCHLORIDE [Concomitant]
     Indication: NON-HODGKIN^S LYMPHOMA
     Dosage: DOSAGE FORM: LIPOSOME INJECTION, DAY OF ADMINISTRATION: 8, 15, 22
     Route: 042
  4. CYCLOPHOSPHAMIDE [Concomitant]
     Indication: NON-HODGKIN^S LYMPHOMA
     Dosage: DOSAGE FORM: UNSPECIFIED, DAY OF ADMINISTRATION: 15, 22, 29
     Route: 042
  5. PREDNISONE [Concomitant]
     Indication: NON-HODGKIN^S LYMPHOMA
     Dosage: DOSAGE FORM: UNSPECIFIED, 1-29, TAPER TO DAY 35
     Route: 048

REACTIONS (1)
  - Intracranial venous sinus thrombosis [Fatal]
